FAERS Safety Report 9539084 (Version 2)
Quarter: 2014Q1

REPORT INFORMATION
  Report Type: Report from Study
  Country: US (occurrence: US)
  Receive Date: 20130920
  Receipt Date: 20140318
  Transmission Date: 20141002
  Serious: Yes (Other)
  Sender: FDA-Public Use
  Company Number: US-ABBVIE-13P-163-1147783-00

PATIENT
  Age: 37 Year
  Sex: Female

DRUGS (6)
  1. HUMIRA [Suspect]
     Indication: CROHN^S DISEASE
  2. LIALDA [Concomitant]
     Indication: CROHN^S DISEASE
  3. AMBIEN [Concomitant]
     Indication: INSOMNIA
     Dosage: PRN NIGHTLY
  4. PROTONIX [Concomitant]
     Indication: DYSPEPSIA
  5. NORCO [Concomitant]
     Indication: PAIN
     Dosage: 5/325
  6. NORCO [Concomitant]
     Dosage: 10/325 PRN

REACTIONS (3)
  - Inguinal hernia [Recovering/Resolving]
  - Injection site pain [Not Recovered/Not Resolved]
  - Thrombosis [Unknown]
